FAERS Safety Report 5752361-9 (Version None)
Quarter: 2008Q2

REPORT INFORMATION
  Report Type: 
  Country: None (occurrence: None)
  Receive Date: 20080529
  Receipt Date: 20080516
  Transmission Date: 20081010
  Serious: Yes (Other)
  Sender: FDA-Public Use
  Company Number: GB-BAUSCH-2008BL002220

PATIENT
  Age: 59 Year
  Sex: Male

DRUGS (3)
  1. DEXAMETHASONE SODIUM PHOSPHATE [Suspect]
     Indication: KERATITIS BACTERIAL
     Route: 047
     Dates: start: 20050101
  2. OFLOXACIN [Suspect]
     Indication: KERATITIS BACTERIAL
     Route: 047
     Dates: start: 20050101
  3. CEFUROXIME [Suspect]
     Indication: KERATITIS BACTERIAL
     Route: 047
     Dates: start: 20050101

REACTIONS (2)
  - CORNEAL DEGENERATION [None]
  - CORNEAL DEPOSITS [None]
